FAERS Safety Report 6522138-5 (Version None)
Quarter: 2009Q4

REPORT INFORMATION
  Report Type: 
  Country: None (occurrence: None)
  Receive Date: 20091229
  Receipt Date: 20091229
  Transmission Date: 20100525
  Serious: Yes (Other)
  Sender: FDA-Public Use
  Company Number: None

PATIENT
  Sex: Female
  Weight: 72.5755 kg

DRUGS (2)
  1. PEGASYS [Suspect]
     Indication: HEPATITIS C
     Dosage: 1 INJECTION WEEKLY SQ
     Route: 058
     Dates: start: 20070921, end: 20090131
  2. COPEGUS [Suspect]
     Indication: HEPATITIS C
     Dosage: 6 PILLS DAILY PO
     Route: 048
     Dates: start: 20070921, end: 20090131

REACTIONS (11)
  - ARTHRALGIA [None]
  - CHRONIC FATIGUE SYNDROME [None]
  - DEPRESSION [None]
  - DRY EYE [None]
  - EMOTIONAL DISORDER [None]
  - FATIGUE [None]
  - FIBROMYALGIA [None]
  - FRUSTRATION [None]
  - GINGIVAL DISORDER [None]
  - MENTAL IMPAIRMENT [None]
  - QUALITY OF LIFE DECREASED [None]
